FAERS Safety Report 20843107 (Version 5)
Quarter: 2022Q4

REPORT INFORMATION
  Report Type: Report from Study
  Country: JP (occurrence: JP)
  Receive Date: 20220518
  Receipt Date: 20221128
  Transmission Date: 20230113
  Serious: Yes (Other)
  Sender: FDA-Public Use
  Company Number: JP-ASTELLAS-2022JP006951

PATIENT
  Age: 9 Decade
  Sex: Female

DRUGS (2)
  1. ENFORTUMAB VEDOTIN [Suspect]
     Active Substance: ENFORTUMAB VEDOTIN
     Indication: Urethral cancer
     Dosage: 1.25 MG/KG, ONCE A WEEK, 3 CONSECUTIVE WEEKS, 4TH WEEK WITHDRAWAL
     Route: 041
     Dates: start: 20211207
  2. ENFORTUMAB VEDOTIN [Suspect]
     Active Substance: ENFORTUMAB VEDOTIN
     Dosage: 1.0 MG/KG, ONCE A WEEK, 3 CONSECUTIVE WEEKS, 4TH WEEK WITHDRAWAL
     Route: 041
     Dates: start: 20220112

REACTIONS (2)
  - Urinary bladder haemorrhage [Recovered/Resolved]
  - Nausea [Recovered/Resolved]

NARRATIVE: CASE EVENT DATE: 20211228
